FAERS Safety Report 14039150 (Version 1)
Quarter: 2017Q4

REPORT INFORMATION
  Report Type: Spontaneous
  Country: FR (occurrence: FR)
  Receive Date: 20171004
  Receipt Date: 20171004
  Transmission Date: 20180321
  Serious: No
  Sender: FDA-Public Use
  Company Number: FR-B. BRAUN MEDICAL INC.-2028771

PATIENT
  Age: 83 Year
  Sex: Female

DRUGS (8)
  1. OROPERIDYS (DOMPERIDONE) [Concomitant]
  2. METRONIDAZOLE. [Suspect]
     Active Substance: METRONIDAZOLE
     Dates: start: 20160703, end: 20160704
  3. ISOSORBIDE MONONITRATE. [Concomitant]
     Active Substance: ISOSORBIDE MONONITRATE
  4. PANTOPRAZOLE SODIUM. [Concomitant]
     Active Substance: PANTOPRAZOLE SODIUM
  5. CREON 250000 (PANCREATINE) [Concomitant]
  6. LOGIMAX (FELODIPINE + METOPROLOL SUCCINATE) [Concomitant]
  7. CEFTRIAXONE. [Concomitant]
     Active Substance: CEFTRIAXONE
     Dates: start: 20160627, end: 20160702
  8. ASCOFER (FERRIC ASCORBATE) [Concomitant]

REACTIONS (2)
  - Tremor [Recovering/Resolving]
  - Myoclonus [Recovering/Resolving]
